FAERS Safety Report 7773890-2 (Version None)
Quarter: 2011Q3

REPORT INFORMATION
  Report Type: 
  Country: None (occurrence: None)
  Receive Date: 20110923
  Receipt Date: 20110912
  Transmission Date: 20111222
  Serious: Yes (Other)
  Sender: FDA-Public Use
  Company Number: US-JNJFOC-20100400463

PATIENT
  Age: 76 Year
  Sex: Male
  Weight: 127.01 kg

DRUGS (17)
  1. TYLENOL-500 [Suspect]
     Indication: PYREXIA
     Route: 048
  2. COUMADIN [Concomitant]
     Indication: ANTICOAGULANT THERAPY
  3. CHOLESTOFF [Concomitant]
     Indication: BLOOD CHOLESTEROL ABNORMAL
  4. TYLENOL-500 [Suspect]
     Indication: ARTHRITIS
     Route: 048
  5. ISORBIDE [Concomitant]
     Indication: HYPERTENSION
  6. TYLENOL-500 [Suspect]
     Dosage: 4-6 CAPLETS A DAY
     Route: 048
  7. ESTER C [Concomitant]
     Indication: MEDICAL DIET
  8. TYLENOL-500 [Suspect]
     Dosage: 4-6 CAPLETS A DAY
     Route: 048
  9. GLYBURIDE [Concomitant]
     Indication: DIABETES MELLITUS
  10. LISINOPRIL [Concomitant]
     Indication: HYPERTENSION
  11. CALCIUM CARBONATE [Concomitant]
     Indication: MINERAL SUPPLEMENTATION
  12. LASIX [Concomitant]
     Indication: CARDIAC DISORDER
  13. METOPROLOL SUCCINATE EXTENDED RELEASE [Concomitant]
     Indication: HYPERTENSION
  14. PRAVASTATIN [Concomitant]
     Indication: BLOOD CHOLESTEROL ABNORMAL
  15. TRAMADOL HCL [Concomitant]
     Indication: PAIN
  16. DILTIAZEM [Concomitant]
     Indication: CARDIAC DISORDER
  17. MULTI-VITAMINS [Concomitant]
     Indication: NUTRITIONAL SUPPORT

REACTIONS (2)
  - DIARRHOEA [None]
  - PRODUCT QUALITY ISSUE [None]
